FAERS Safety Report 4598397-5 (Version None)
Quarter: 2005Q1

REPORT INFORMATION
  Report Type: 
  Country: None (occurrence: None)
  Receive Date: 20050301
  Receipt Date: 20050301
  Transmission Date: 20050727
  Serious: Yes (Other)
  Sender: FDA-Public Use
  Company Number: None

PATIENT
  Age: 38 Year
  Sex: Female
  Weight: 57.6068 kg

DRUGS (1)
  1. SPRINTEC [Suspect]
     Indication: CONTRACEPTION
     Dosage: 1 TAB PO Q DAY
     Route: 048
     Dates: start: 20050101, end: 20050201

REACTIONS (2)
  - HEADACHE [None]
  - PHARMACEUTICAL PRODUCT COMPLAINT [None]
